FAERS Safety Report 22281780 (Version 1)
Quarter: 2023Q2

REPORT INFORMATION
  Report Type: Report from Study
  Country: US (occurrence: US)
  Receive Date: 20230504
  Receipt Date: 20230504
  Transmission Date: 20230721
  Serious: Yes (Hospitalization)
  Sender: FDA-Public Use
  Company Number: US-ABBVIE-4750933

PATIENT
  Sex: Female

DRUGS (1)
  1. HUMIRA [Suspect]
     Active Substance: ADALIMUMAB
     Indication: Hidradenitis
     Dates: start: 20150101

REACTIONS (4)
  - Dermatitis allergic [Recovering/Resolving]
  - Hidradenitis [Recovering/Resolving]
  - Allergy to animal [Recovering/Resolving]
  - Blister [Unknown]
